FAERS Safety Report 24237140 (Version 2)
Quarter: 2025Q2

REPORT INFORMATION
  Report Type: Report from Study
  Country: US (occurrence: US)
  Receive Date: 20240822
  Receipt Date: 20250531
  Transmission Date: 20250717
  Serious: Yes (Hospitalization, Other)
  Sender: STEMLINE THERAPEUTICS
  Company Number: US-Stemline Therapeutics, Inc.-2024ST004021

PATIENT

DRUGS (2)
  1. ORSERDU [Suspect]
     Active Substance: ELACESTRANT
     Indication: Product used for unknown indication
     Dosage: 345 MG, DAILY
     Route: 048
  2. ORSERDU [Suspect]
     Active Substance: ELACESTRANT
     Dosage: 4 DOSAGE FORM, DAILY (86X4 TABLETS)
     Route: 048

REACTIONS (6)
  - Intestinal obstruction [Unknown]
  - Choking [Unknown]
  - Fatigue [Unknown]
  - Product size issue [Unknown]
  - Product dose omission issue [Unknown]
  - Incorrect dose administered [Unknown]
